FAERS Safety Report 10025518 (Version 1)
Quarter: 2014Q1

REPORT INFORMATION
  Report Type: Spontaneous
  Country: US (occurrence: None)
  Receive Date: 20140304
  Receipt Date: 20140304
  Transmission Date: 20141002
  Serious: Yes (Death)
  Sender: FDA-Public Use
  Company Number: RB-50987-2013

PATIENT
  Age: 29 Year
  Sex: Female

DRUGS (3)
  1. SUBOXONE [Suspect]
     Indication: PRODUCT USED FOR UNKNOWN INDICATION
     Dates: end: 201206
  2. ALCOHOL [Suspect]
     Indication: PRODUCT USED FOR UNKNOWN INDICATION
     Route: 048
     Dates: end: 20120614
  3. ADIPEX [Suspect]
     Indication: WEIGHT DECREASED
     Dosage: DOSING DETAIL UNKNOWN
     Route: 048
     Dates: start: 201205, end: 20120614

REACTIONS (2)
  - Toxicity to various agents [None]
  - Substance abuse [None]
